FAERS Safety Report 4935017-1 (Version None)
Quarter: 2006Q1

REPORT INFORMATION
  Report Type: 
  Country: None (occurrence: None)
  Receive Date: 20060306
  Receipt Date: 20060306
  Transmission Date: 20060701
  Serious: Yes (Hospitalization)
  Sender: FDA-Public Use
  Company Number: None

PATIENT
  Sex: Male
  Weight: 89.3586 kg

DRUGS (1)
  1. CEFOTETAN [Suspect]
     Dosage: 1 GRAM IV
     Route: 042
     Dates: start: 20051214, end: 20051215

REACTIONS (6)
  - DYSPHAGIA [None]
  - DYSPNOEA [None]
  - ERYTHEMA [None]
  - OROPHARYNGEAL SWELLING [None]
  - PHARYNGEAL OEDEMA [None]
  - PRURITUS [None]
